FAERS Safety Report 13363787 (Version 1)
Quarter: 2017Q1

REPORT INFORMATION
  Report Type: Not Available
  Country: US (occurrence: US)
  Receive Date: 20170323
  Receipt Date: 20170323
  Transmission Date: 20170429
  Serious: No
  Sender: FDA-Public Use
  Company Number: US-ANIPHARMA-2016-US-005774

PATIENT
  Age: 63 Year
  Sex: Male
  Weight: 167.83 kg

DRUGS (1)
  1. LITHOBID [Suspect]
     Active Substance: LITHIUM CARBONATE
     Dosage: UNKNOWN
     Route: 065

REACTIONS (2)
  - Choking [Unknown]
  - Nausea [Unknown]
